FAERS Safety Report 9319895 (Version 1)
Quarter: 2013Q2

REPORT INFORMATION
  Report Type: Spontaneous
  Country: US (occurrence: US)
  Receive Date: 20130530
  Receipt Date: 20130530
  Transmission Date: 20140414
  Serious: No
  Sender: FDA-Public Use
  Company Number: US-UPSHER-SMITH LABORATORIES, INC.-12001663

PATIENT
  Sex: Female

DRUGS (8)
  1. POTASSIUM CHLORIDE ER [Suspect]
     Indication: BLOOD POTASSIUM DECREASED
     Dosage: UNK
     Dates: start: 2012, end: 201206
  2. METHADONE [Concomitant]
     Indication: PAIN
     Dosage: UNK
  3. HYDROCODONE [Concomitant]
     Indication: PAIN
     Dosage: UNK
  4. ARMOUR THYROID [Concomitant]
     Dosage: UNK
  5. HYDROCHLOROTHIAZIDE [Concomitant]
     Indication: HYPERTENSION
     Dosage: UNK
  6. DOMPERIDONE [Concomitant]
     Indication: IMPAIRED GASTRIC EMPTYING
     Dosage: UNK
  7. CASCARA SAGRADA                    /00143201/ [Concomitant]
     Indication: CONSTIPATION
     Dosage: UNK
  8. MULTIVITAMIN                       /01229101/ [Concomitant]
     Dosage: UNK

REACTIONS (2)
  - Drug ineffective [Not Recovered/Not Resolved]
  - Blood pressure increased [Recovered/Resolved]
